FAERS Safety Report 12741273 (Version 4)
Quarter: 2017Q2

REPORT INFORMATION
  Report Type: Spontaneous
  Country: US (occurrence: US)
  Receive Date: 20160914
  Receipt Date: 20170403
  Transmission Date: 20170830
  Serious: Yes (Other)
  Sender: FDA-Public Use
  Company Number: US-JNJFOC-20160911802

PATIENT
  Age: 60 Year
  Sex: Male

DRUGS (1)
  1. LEVAQUIN [Suspect]
     Active Substance: LEVOFLOXACIN
     Indication: PRODUCT USED FOR UNKNOWN INDICATION
     Route: 048

REACTIONS (7)
  - Neuropathy peripheral [Unknown]
  - Neuropsychiatric symptoms [Unknown]
  - Visual impairment [Unknown]
  - Hypoacusis [Unknown]
  - Musculoskeletal disorder [Unknown]
  - Skin disorder [Unknown]
  - Cardiovascular disorder [Unknown]

NARRATIVE: CASE EVENT DATE: 201001
